FAERS Safety Report 8099895-2 (Version None)
Quarter: 2012Q1

REPORT INFORMATION
  Report Type: 
  Country: None (occurrence: None)
  Receive Date: 20120131
  Receipt Date: 20120126
  Transmission Date: 20120608
  Serious: No
  Sender: FDA-Public Use
  Company Number: US-PFIZER INC-2011227096

PATIENT
  Sex: Female
  Weight: 41.723 kg

DRUGS (6)
  1. RELPAX [Suspect]
     Dosage: 40 MG, 1X/DAY
     Route: 048
  2. BYSTOLIC [Concomitant]
     Indication: HYPERTENSION
     Dosage: UNK
  3. TOPAMAX [Concomitant]
     Dosage: UNK
  4. SYNTHROID [Concomitant]
     Indication: HYPOTHYROIDISM
     Dosage: UNK
  5. HYDROCHLOROTHIAZIDE [Concomitant]
     Dosage: UNK
  6. RELPAX [Suspect]
     Indication: MIGRAINE
     Dosage: UNK

REACTIONS (1)
  - MIGRAINE [None]
